FAERS Safety Report 7504089-2 (Version None)
Quarter: 2011Q2

REPORT INFORMATION
  Report Type: 
  Country: None (occurrence: None)
  Receive Date: 20110525
  Receipt Date: 20110519
  Transmission Date: 20111010
  Serious: Yes (Other)
  Sender: FDA-Public Use
  Company Number: FR-ABBOTT-11P-056-0725257-00

PATIENT
  Sex: Male

DRUGS (2)
  1. FENOFIBRATE [Suspect]
     Route: 048
     Dates: start: 20110512, end: 20110512
  2. FENOFIBRATE [Suspect]
     Indication: HYPERCHOLESTEROLAEMIA
     Route: 048
     Dates: start: 20110301, end: 20110511

REACTIONS (3)
  - DRUG ADMINISTRATION ERROR [None]
  - OVERDOSE [None]
  - HOT FLUSH [None]
